FAERS Safety Report 19482401 (Version 1)
Quarter: 2021Q3

REPORT INFORMATION
  Report Type: Spontaneous
  Country: US (occurrence: US)
  Receive Date: 20210701
  Receipt Date: 20210701
  Transmission Date: 20211014
  Serious: No
  Sender: FDA-Public Use
  Company Number: US-SA-2021SA216205

PATIENT
  Sex: Female

DRUGS (1)
  1. DUPIXENT [Suspect]
     Active Substance: DUPILUMAB
     Indication: ASTHMA
     Dosage: UNK
     Dates: start: 20210624

REACTIONS (7)
  - Fatigue [Unknown]
  - Myalgia [Unknown]
  - Insomnia [Unknown]
  - Paraesthesia [Unknown]
  - Toothache [Unknown]
  - Arthralgia [Unknown]
  - Oral pain [Unknown]

NARRATIVE: CASE EVENT DATE: 2021
